FAERS Safety Report 4666304-2 (Version None)
Quarter: 2005Q2

REPORT INFORMATION
  Report Type: 
  Country: None (occurrence: None)
  Receive Date: 20050518
  Receipt Date: 20050509
  Transmission Date: 20051028
  Serious: Yes (Hospitalization, Disabling, Other)
  Sender: FDA-Public Use
  Company Number: 2005036672

PATIENT
  Age: 75 Year
  Sex: Male
  Weight: 51 kg

DRUGS (7)
  1. SULPERAZON                      (SULBACTAM, CEFOPERAZONE) [Suspect]
     Indication: ENTEROCOLITIS
     Dosage: 1 GRAM (500 MG, 2 IN 1 D); INTRAVENOUS
     Route: 042
     Dates: start: 20040508, end: 20040515
  2. SULPERAZON                      (SULBACTAM, CEFOPERAZONE) [Suspect]
     Indication: INTESTINAL OBSTRUCTION
     Dosage: 1 GRAM (500 MG, 2 IN 1 D); INTRAVENOUS
     Route: 042
     Dates: start: 20040508, end: 20040515
  3. HICALIO [Concomitant]
  4. SOLITA-T1 INJECTION [Concomitant]
  5. MV                    (VITAMINS NOS) [Concomitant]
  6. GLUCOSE (GLUCOSE) [Concomitant]
  7. ALBUMIN (HUMAN) [Concomitant]

REACTIONS (12)
  - ACTIVATED PARTIAL THROMBOPLASTIN TIME PROLONGED [None]
  - ASTHENIA [None]
  - COAGULOPATHY [None]
  - EXTRADURAL HAEMATOMA [None]
  - ILEUS [None]
  - INTESTINAL OBSTRUCTION [None]
  - MALABSORPTION [None]
  - PARALYSIS [None]
  - PROTHROMBIN TIME PROLONGED [None]
  - SENSORIMOTOR DISORDER [None]
  - THERAPY NON-RESPONDER [None]
  - WOUND HAEMORRHAGE [None]
